FAERS Safety Report 21097456 (Version 1)
Quarter: 2022Q3

REPORT INFORMATION
  Report Type: Spontaneous
  Country: US (occurrence: US)
  Receive Date: 20220719
  Receipt Date: 20220719
  Transmission Date: 20221026
  Serious: No
  Sender: FDA-Public Use
  Company Number: US-BRISTOL-MYERS SQUIBB COMPANY-BMS-2022-040149

PATIENT
  Age: 83 Year
  Sex: Male
  Weight: 72.575 kg

DRUGS (1)
  1. COUMADIN [Suspect]
     Active Substance: WARFARIN SODIUM
     Indication: Atrial fibrillation
     Dosage: 1/2 TABLET
     Route: 065

REACTIONS (7)
  - International normalised ratio abnormal [Unknown]
  - Haemorrhage [Unknown]
  - Wrong technique in product usage process [Unknown]
  - Dehydration [Unknown]
  - Macule [Unknown]
  - Spinal disorder [Unknown]
  - Weight increased [Unknown]
